FAERS Safety Report 14586788 (Version 1)
Quarter: 2018Q1

REPORT INFORMATION
  Report Type: Spontaneous
  Country: US (occurrence: US)
  Receive Date: 20180228
  Receipt Date: 20180228
  Transmission Date: 20180509
  Serious: Yes (Hospitalization)
  Sender: FDA-Public Use
  Company Number: None

PATIENT
  Age: 40 Year
  Sex: Female

DRUGS (15)
  1. ASPIRIN. [Concomitant]
     Active Substance: ASPIRIN
  2. FLONASE [Concomitant]
     Active Substance: FLUTICASONE PROPIONATE
  3. MAGNESIUM OXIDE. [Concomitant]
     Active Substance: MAGNESIUM OXIDE
  4. NORTHERA [Suspect]
     Active Substance: DROXIDOPA
     Route: 048
     Dates: start: 20170424
  5. EFFEXOR [Concomitant]
     Active Substance: VENLAFAXINE HYDROCHLORIDE
  6. IRON [Concomitant]
     Active Substance: IRON
  7. MECLIZINE [Concomitant]
     Active Substance: MECLIZINE HYDROCHLORIDE
  8. PHENERGAN [Concomitant]
     Active Substance: PROMETHAZINE HYDROCHLORIDE
  9. CORLANOR [Concomitant]
     Active Substance: IVABRADINE HYDROCHLORIDE
  10. KLONOPIN [Concomitant]
     Active Substance: CLONAZEPAM
  11. ZOFRAN [Concomitant]
     Active Substance: ONDANSETRON HYDROCHLORIDE
  12. FAMOTIDINE. [Concomitant]
     Active Substance: FAMOTIDINE
  13. DOCQLACE [Concomitant]
     Active Substance: DOCUSATE SODIUM
  14. PEPCID [Concomitant]
     Active Substance: FAMOTIDINE
  15. POTASSIUM CHLORIDE. [Concomitant]
     Active Substance: POTASSIUM CHLORIDE

REACTIONS (2)
  - Dysstasia [None]
  - Drug dose omission [None]
